FAERS Safety Report 12266057 (Version 1)
Quarter: 2016Q2

REPORT INFORMATION
  Report Type: Spontaneous
  Country: FR (occurrence: FR)
  Receive Date: 20160413
  Receipt Date: 20160413
  Transmission Date: 20160815
  Serious: Yes (Other)
  Sender: FDA-Public Use
  Company Number: FR-ABBVIE-16P-056-1603734-00

PATIENT
  Sex: Female

DRUGS (1)
  1. DEPAKINE [Suspect]
     Active Substance: VALPROATE SODIUM
     Indication: MATERNAL EXPOSURE TIMING UNSPECIFIED
     Route: 064

REACTIONS (9)
  - Feeding disorder [Unknown]
  - Psychomotor hyperactivity [Unknown]
  - Adrenal insufficiency [Unknown]
  - Ear infection [Unknown]
  - Developmental delay [Unknown]
  - Disease susceptibility [Unknown]
  - Foetal exposure during pregnancy [Unknown]
  - Cardiac disorder [Unknown]
  - Sleep disorder [Not Recovered/Not Resolved]
